FAERS Safety Report 19865943 (Version 3)
Quarter: 2021Q3

REPORT INFORMATION
  Report Type: Spontaneous
  Country: US (occurrence: US)
  Receive Date: 20210921
  Receipt Date: 20210930
  Transmission Date: 20211014
  Serious: Yes (Disabling, Other)
  Sender: FDA-Public Use
  Company Number: US-SUNOVION-2021SUN003440

PATIENT
  Age: 54 Year
  Sex: Female
  Weight: 48.53 kg

DRUGS (7)
  1. LATUDA [Suspect]
     Active Substance: LURASIDONE HYDROCHLORIDE
     Dosage: 20 MG
     Route: 048
     Dates: start: 20210811, end: 20210816
  2. INGREZZA [Suspect]
     Active Substance: VALBENAZINE
     Dosage: 40 MG
  3. LATUDA [Suspect]
     Active Substance: LURASIDONE HYDROCHLORIDE
     Indication: BIPOLAR DISORDER
     Dosage: 40 MG
     Route: 048
     Dates: start: 20200730, end: 20210728
  4. SEROQUEL [Suspect]
     Active Substance: QUETIAPINE FUMARATE
     Indication: SLEEP DISORDER
     Dosage: 50 MG, HS
     Dates: start: 20200818, end: 20210420
  5. NEURONTIN [Concomitant]
     Active Substance: GABAPENTIN
     Indication: BIPOLAR DISORDER
     Dosage: 500 MG, HS
  6. INGREZZA [Suspect]
     Active Substance: VALBENAZINE
     Dosage: 80 MG
  7. NEURONTIN [Concomitant]
     Active Substance: GABAPENTIN
     Indication: SLEEP DISORDER

REACTIONS (5)
  - Tremor [Recovering/Resolving]
  - Tardive dyskinesia [Recovering/Resolving]
  - Asthenia [Not Recovered/Not Resolved]
  - Gait inability [Not Recovered/Not Resolved]
  - Dyskinesia [Not Recovered/Not Resolved]

NARRATIVE: CASE EVENT DATE: 202104
